FAERS Safety Report 22693426 (Version 2)
Quarter: 2024Q3

REPORT INFORMATION
  Report Type: Spontaneous
  Country: GB (occurrence: GB)
  Receive Date: 20230711
  Receipt Date: 20240711
  Transmission Date: 20241017
  Serious: Yes (Hospitalization, Other)
  Sender: RANBAXY
  Company Number: GB-SUN PHARMACEUTICAL INDUSTRIES LTD-2023R1-398552

PATIENT
  Age: 30 Year
  Sex: Female

DRUGS (5)
  1. MORPHINE [Suspect]
     Active Substance: MORPHINE
     Indication: Labour induction
     Dosage: UNK (2 MG)
     Route: 008
  2. EPINEPHRINE [Suspect]
     Active Substance: EPINEPHRINE
     Indication: Labour induction
     Dosage: UNK (1:200 000)
     Route: 008
  3. FENTANYL [Suspect]
     Active Substance: FENTANYL\FENTANYL CITRATE
     Indication: Labour induction
     Dosage: UNK (100 MCG)
     Route: 008
  4. LEVOBUPIVACAINE [Suspect]
     Active Substance: LEVOBUPIVACAINE
     Indication: Labour induction
     Dosage: UNK (4 ML OF 0.5%)
     Route: 008
  5. LIDOCAINE [Suspect]
     Active Substance: LIDOCAINE
     Indication: Labour induction
     Dosage: UNK (15 ML OF 2%)
     Route: 008

REACTIONS (2)
  - Exposure during pregnancy [Unknown]
  - Live birth [Unknown]
